FAERS Safety Report 20777738 (Version 1)
Quarter: 2022Q2

REPORT INFORMATION
  Report Type: Spontaneous
  Country: GB (occurrence: GB)
  Receive Date: 20220503
  Receipt Date: 20220503
  Transmission Date: 20220721
  Serious: Yes (Life-Threatening, Other)
  Sender: FDA-Public Use
  Company Number: GB-MHRA-MED-202204291204555560-YAJXY

PATIENT
  Age: 56 Year
  Sex: Male
  Weight: 93 kg

DRUGS (2)
  1. EMPAGLIFLOZIN [Suspect]
     Active Substance: EMPAGLIFLOZIN
     Indication: Product used for unknown indication
  2. METFORMIN [Concomitant]
     Active Substance: METFORMIN HYDROCHLORIDE
     Indication: Product used for unknown indication

REACTIONS (1)
  - Euglycaemic diabetic ketoacidosis [Recovered/Resolved]

NARRATIVE: CASE EVENT DATE: 20220428
